FAERS Safety Report 19838785 (Version 12)
Quarter: 2022Q1

REPORT INFORMATION
  Report Type: Spontaneous
  Country: BR (occurrence: BR)
  Receive Date: 20210916
  Receipt Date: 20220124
  Transmission Date: 20220423
  Serious: Yes (Other)
  Sender: FDA-Public Use
  Company Number: BR-CELLTRION INC.-2021BR011949

PATIENT

DRUGS (47)
  1. HERZUMA [Suspect]
     Active Substance: TRASTUZUMAB-PKRB
     Indication: Breast cancer female
     Dosage: 8MG PER KG (ATTACK DOSE) FIRST CYCLE
     Route: 042
     Dates: start: 20210416
  2. HERZUMA [Suspect]
     Active Substance: TRASTUZUMAB-PKRB
     Dosage: 6 MG/KG (PLANNED FOR 9 CYCLES) EVERY 21 DAYS
     Route: 042
     Dates: start: 20210730
  3. HERZUMA [Suspect]
     Active Substance: TRASTUZUMAB-PKRB
     Dosage: SEVENTH CYCLE OF CHEMOTHERAPY
     Dates: start: 20210827
  4. HERZUMA [Suspect]
     Active Substance: TRASTUZUMAB-PKRB
     Dosage: 6 MG PER KG
     Route: 042
     Dates: start: 20210917
  5. HERZUMA [Suspect]
     Active Substance: TRASTUZUMAB-PKRB
     Dosage: 498 MG, EVERY 21 DAYS
     Dates: start: 20211015
  6. HERZUMA [Suspect]
     Active Substance: TRASTUZUMAB-PKRB
     Dosage: 420 MG, EVERY 21 DAYS
  7. HERZUMA [Suspect]
     Active Substance: TRASTUZUMAB-PKRB
     Dosage: 6 MG/KG EVERY 21 DAYS
  8. PERJETA [Suspect]
     Active Substance: PERTUZUMAB
     Indication: Breast cancer female
     Dosage: 420 MG (PLANNED FOR 9 CYCLES) EVERY 21 DAYS
     Route: 042
     Dates: start: 20210416
  9. PERJETA [Suspect]
     Active Substance: PERTUZUMAB
     Dosage: 420 MG (PLANNED FOR 9 CYCLES) EVERY 21 DAYS
     Route: 042
     Dates: start: 20210730
  10. PERJETA [Suspect]
     Active Substance: PERTUZUMAB
     Dosage: APPLICATION THE D1 OF THE SEVENTH CYCLE
     Dates: start: 20210917
  11. PERJETA [Suspect]
     Active Substance: PERTUZUMAB
     Dosage: 420 MG
  12. PACLITAXEL [Suspect]
     Active Substance: PACLITAXEL
     Indication: Breast cancer female
     Dosage: 80 MG/M2 ON D1 AND D8 OF EACH CYCLE, WITH A 21 DAY INTERVAL BETWEEN THE STARTS OF EACH CYCLE
     Route: 042
     Dates: start: 20210416
  13. PACLITAXEL [Suspect]
     Active Substance: PACLITAXEL
     Dosage: 80 MG/M2 ON D1 AND D8 OF EACH CYCLE, WITH A 21 DAY INTERVAL BETWEEN THE STARTS OF EACH CYCLE
     Route: 042
     Dates: start: 20210806
  14. PACLITAXEL [Suspect]
     Active Substance: PACLITAXEL
     Dosage: 30 MG (D8 OF THE 6 CYCLE)
     Route: 042
     Dates: start: 20210806
  15. PACLITAXEL [Suspect]
     Active Substance: PACLITAXEL
     Dosage: 100 MG
     Route: 042
     Dates: start: 202107
  16. PACLITAXEL [Suspect]
     Active Substance: PACLITAXEL
     Dosage: 30 MG  (D1 OF THE 6 CYCLE)
     Route: 042
     Dates: start: 20210806
  17. PACLITAXEL [Suspect]
     Active Substance: PACLITAXEL
     Dosage: UNK, SEVENTH CYCLE OF CHEMOTHERAPY
     Dates: start: 20210827
  18. PACLITAXEL [Suspect]
     Active Substance: PACLITAXEL
     Dosage: UNK, 1 WEEK AFTER THE SEVENTH CYCLE
     Dates: start: 20210903
  19. PACLITAXEL [Suspect]
     Active Substance: PACLITAXEL
     Dosage: APPLICATION THE D1 OF THE SEVENTH CYCLE
     Dates: start: 20210917
  20. PACLITAXEL [Suspect]
     Active Substance: PACLITAXEL
     Dosage: UNK, APPLICATION THE D8 OF THE SEVENTH CYCLE
     Dates: start: 20210924
  21. CARBOPLATIN [Suspect]
     Active Substance: CARBOPLATIN
     Indication: Breast cancer female
     Dosage: (6 AUC - IV) EVERY 21 DAYS
     Route: 042
     Dates: start: 20210416
  22. CARBOPLATIN [Suspect]
     Active Substance: CARBOPLATIN
     Dosage: (6 AUC - IV) EVERY 21 DAYS
     Route: 042
     Dates: start: 20210730
  23. CARBOPLATIN [Suspect]
     Active Substance: CARBOPLATIN
     Dosage: 50 MG (D1 OF THE 6 CYCLE)
     Route: 042
     Dates: start: 202107
  24. CARBOPLATIN [Suspect]
     Active Substance: CARBOPLATIN
     Dosage: 150 MG
     Route: 042
  25. CARBOPLATIN [Suspect]
     Active Substance: CARBOPLATIN
     Dosage: 50 MG (D8 OF THE 6 CYCLE)
     Route: 042
     Dates: start: 20210806
  26. CARBOPLATIN [Suspect]
     Active Substance: CARBOPLATIN
     Dosage: UNK, SEVENTH CYCLE OF CHEMOTHERAPY
     Dates: start: 20210827
  27. CARBOPLATIN [Suspect]
     Active Substance: CARBOPLATIN
     Dosage: 20 MG
  28. CARBOPLATIN [Suspect]
     Active Substance: CARBOPLATIN
     Dosage: APPLICATION THE D1 OF THE SEVENTH CYCLE
     Dates: start: 20210917
  29. SODIUM CHLORIDE [Suspect]
     Active Substance: SODIUM CHLORIDE
     Indication: Product used for unknown indication
     Dosage: PERTUZUMAB WAS DILUTED IN 250 ML OF SALINE SOLUTION
  30. SODIUM CHLORIDE [Suspect]
     Active Substance: SODIUM CHLORIDE
     Dosage: TRASTUZUMAB WAS DILUTED IN 250 ML OF SALINE SOLUTION
  31. SODIUM CHLORIDE [Suspect]
     Active Substance: SODIUM CHLORIDE
     Dosage: PACLITAXEL WAS DILUTED IN 250 ML OF SALINE SOLUTION
  32. SODIUM CHLORIDE [Suspect]
     Active Substance: SODIUM CHLORIDE
     Dosage: HERZUMA (SALINE 250 ML IN 30 MIN)
  33. SODIUM CHLORIDE [Suspect]
     Active Substance: SODIUM CHLORIDE
     Dosage: PERJETA (SALINE 250 ML IN 30 MIN)
  34. SODIUM CHLORIDE [Suspect]
     Active Substance: SODIUM CHLORIDE
     Dosage: ONTAX (SALINE SOLUTION OF 250 ML IN 1 HOUR)
  35. SIMVASTATIN [Concomitant]
     Active Substance: SIMVASTATIN
     Indication: Dyslipidaemia
     Dosage: 20 MG
     Route: 048
  36. AMITRIPTYLINE [Concomitant]
     Active Substance: AMITRIPTYLINE
     Indication: Migraine
     Dosage: 25 MILLIGRAM
     Route: 048
  37. PURAN [Concomitant]
     Active Substance: LEVOTHYROXINE SODIUM
     Indication: Hyperthyroidism
     Dosage: 100 MICROGRAM
     Route: 048
  38. VITAMIN D [Concomitant]
     Active Substance: VITAMIN D NOS
     Indication: Vitamin supplementation
     Dosage: 1000 IU
     Route: 048
  39. FOSAPREPITANT [Concomitant]
     Active Substance: FOSAPREPITANT
     Indication: Chemotherapy side effect prophylaxis
     Dosage: 150 MG
     Route: 042
  40. FOSAPREPITANT [Concomitant]
     Active Substance: FOSAPREPITANT
     Dosage: 150 MG
     Route: 048
  41. PALONOSETRON [Concomitant]
     Active Substance: PALONOSETRON
     Indication: Chemotherapy side effect prophylaxis
     Dosage: 0.25 MG
     Route: 042
  42. PALONOSETRON [Concomitant]
     Active Substance: PALONOSETRON
     Dosage: 0.25 MG
     Route: 048
  43. DIPHENHYDRAMINE [Concomitant]
     Active Substance: DIPHENHYDRAMINE
     Indication: Chemotherapy side effect prophylaxis
     Dosage: 50 MILLIGRAM
     Route: 042
  44. DIPHENHYDRAMINE [Concomitant]
     Active Substance: DIPHENHYDRAMINE
     Dosage: 50 MILLIGRAM
     Route: 048
  45. DEXAMETHASONE [Concomitant]
     Active Substance: DEXAMETHASONE
     Indication: Chemotherapy side effect prophylaxis
     Dosage: 12 MG
     Route: 042
  46. DEXAMETHASONE [Concomitant]
     Active Substance: DEXAMETHASONE
     Dosage: 12 MG
     Route: 048
  47. ZOLPIDEM [Concomitant]
     Active Substance: ZOLPIDEM TARTRATE
     Indication: Insomnia
     Dosage: 10 MG
     Route: 048

REACTIONS (4)
  - Neutropenia [Not Recovered/Not Resolved]
  - Neutropenia [Not Recovered/Not Resolved]
  - Thrombocytopenia [Not Recovered/Not Resolved]
  - Treatment delayed [Unknown]

NARRATIVE: CASE EVENT DATE: 20210819
